FAERS Safety Report 9933313 (Version 2)
Quarter: 2014Q1

REPORT INFORMATION
  Report Type: Report from Study
  Country: US (occurrence: US)
  Receive Date: 20140228
  Receipt Date: 20140228
  Transmission Date: 20141002
  Serious: No
  Sender: FDA-Public Use
  Company Number: US-MYLANLABS-2013S1004678

PATIENT
  Age: 15 Year
  Sex: Male
  Weight: 73.03 kg

DRUGS (2)
  1. AMNESTEEM CAPSULES [Suspect]
     Indication: ACNE
     Route: 048
     Dates: start: 20121023
  2. AMNESTEEM CAPSULES [Suspect]
     Indication: ACNE
     Route: 048

REACTIONS (4)
  - Epistaxis [Not Recovered/Not Resolved]
  - Dry eye [Not Recovered/Not Resolved]
  - Disturbance in attention [Not Recovered/Not Resolved]
  - Irritability [Recovered/Resolved]
